FAERS Safety Report 13391073 (Version 1)
Quarter: 2017Q1

REPORT INFORMATION
  Report Type: Report from Study
  Country: US (occurrence: US)
  Receive Date: 20170331
  Receipt Date: 20170331
  Transmission Date: 20170429
  Serious: Yes (Hospitalization)
  Sender: FDA-Public Use
  Company Number: US-WEST-WARD PHARMACEUTICALS CORP.-US-H14001-17-00822

PATIENT

DRUGS (2)
  1. NALOXEGOL [Suspect]
     Active Substance: NALOXEGOL
     Indication: CONSTIPATION
     Route: 048
  2. MORPHINE [Suspect]
     Active Substance: MORPHINE
     Indication: PAIN
     Dosage: 30-1000 MORPHINE-EQUIVALENT UNITS/D
     Route: 065

REACTIONS (3)
  - Mental status changes [Unknown]
  - Metabolic disorder [Unknown]
  - Drug withdrawal syndrome [Unknown]
